FAERS Safety Report 10220293 (Version 3)
Quarter: 2014Q3

REPORT INFORMATION
  Report Type: Report from Study
  Country: DE (occurrence: DE)
  Receive Date: 20140606
  Receipt Date: 20140808
  Transmission Date: 20150326
  Serious: Yes (Hospitalization)
  Sender: FDA-Public Use
  Company Number: DE-ROCHE-1199916

PATIENT
  Age: 63 Year
  Sex: Female
  Weight: 54 kg

DRUGS (24)
  1. BEVACIZUMAB [Suspect]
     Active Substance: BEVACIZUMAB
     Dosage: ON 07/FEB/2013 LAST DOSE OF BEVACIZUMAB ADMINISTERED PRIOR TO SAE
     Route: 042
     Dates: start: 20130117, end: 20130117
  2. SOSTRIL (GERMANY) [Concomitant]
     Indication: PREMEDICATION
     Route: 042
     Dates: start: 20121004, end: 20130117
  3. PACLITAXEL. [Concomitant]
     Active Substance: PACLITAXEL
     Route: 042
     Dates: start: 20130117, end: 20130117
  4. DEXAMETHASON [Concomitant]
     Active Substance: DEXAMETHASONE
     Indication: VOMITING
     Route: 048
     Dates: start: 20121005, end: 20130120
  5. PACLITAXEL. [Concomitant]
     Active Substance: PACLITAXEL
     Route: 042
     Dates: start: 20121004, end: 20121004
  6. TORASEMIDE [Concomitant]
     Active Substance: TORSEMIDE
     Route: 048
     Dates: start: 20131218
  7. CARBOPLATIN. [Concomitant]
     Active Substance: CARBOPLATIN
     Route: 042
     Dates: start: 20121115, end: 20121115
  8. PACLITAXEL. [Concomitant]
     Active Substance: PACLITAXEL
     Route: 042
     Dates: start: 20121115, end: 20121115
  9. BEVACIZUMAB [Suspect]
     Active Substance: BEVACIZUMAB
     Dosage: ON 07/FEB/2013 LAST DOSE OF BEVACIZUMAB ADMINISTERED PRIOR TO SAE
     Route: 042
     Dates: start: 20130207, end: 20130207
  10. CARBOPLATIN. [Concomitant]
     Active Substance: CARBOPLATIN
     Indication: OVARIAN CANCER
     Dosage: DOSAGES BETWEEN 485 MG AND 644 MG
     Route: 042
     Dates: start: 20121004, end: 20121004
  11. CARBOPLATIN. [Concomitant]
     Active Substance: CARBOPLATIN
     Route: 042
     Dates: start: 20130117, end: 20130117
  12. EXFORGE [Concomitant]
     Active Substance: AMLODIPINE BESYLATE\VALSARTAN
     Route: 048
     Dates: start: 20131218
  13. FORTECORTIN [Concomitant]
     Active Substance: DEXAMETHASONE
     Indication: PREMEDICATION
     Route: 042
     Dates: start: 20121004, end: 20130117
  14. GRANISETRON [Concomitant]
     Active Substance: GRANISETRON
     Indication: VOMITING
     Route: 048
     Dates: start: 20121005, end: 20130120
  15. CARBOPLATIN. [Concomitant]
     Active Substance: CARBOPLATIN
     Route: 042
     Dates: start: 20121206, end: 20121206
  16. CARBOPLATIN. [Concomitant]
     Active Substance: CARBOPLATIN
     Route: 042
     Dates: start: 20121228, end: 20121228
  17. BEVACIZUMAB [Suspect]
     Active Substance: BEVACIZUMAB
     Indication: OVARIAN CANCER
     Dosage: ON 07/FEB/2013 LAST DOSE OF BEVACIZUMAB ADMINISTERED PRIOR TO SAE
     Route: 042
     Dates: start: 20121025, end: 20121025
  18. PACLITAXEL. [Concomitant]
     Active Substance: PACLITAXEL
     Route: 042
     Dates: start: 20121206, end: 20121206
  19. KEVATRIL [Concomitant]
     Active Substance: GRANISETRON HYDROCHLORIDE
     Indication: PREMEDICATION
     Route: 042
     Dates: start: 20121004, end: 20130117
  20. TAVEGIL [Concomitant]
     Active Substance: CLEMASTINE FUMARATE
     Indication: PREMEDICATION
     Route: 042
     Dates: start: 20121004, end: 20130117
  21. BEVACIZUMAB [Suspect]
     Active Substance: BEVACIZUMAB
     Indication: OVARIAN CANCER
     Dosage: ON 07/FEB/2013 LAST DOSE OF BEVACIZUMAB ADMINISTERED PRIOR TO SAE
     Route: 042
     Dates: start: 20121228, end: 20121228
  22. CARBOPLATIN. [Concomitant]
     Active Substance: CARBOPLATIN
     Route: 042
     Dates: start: 20121025, end: 20121025
  23. PACLITAXEL. [Concomitant]
     Active Substance: PACLITAXEL
     Indication: OVARIAN CANCER
     Route: 042
     Dates: start: 20121025, end: 20121025
  24. PACLITAXEL. [Concomitant]
     Active Substance: PACLITAXEL
     Route: 042
     Dates: start: 20121228, end: 20121228

REACTIONS (4)
  - Sepsis [Recovered/Resolved]
  - Lymphocele [Recovered/Resolved]
  - Ascites [Recovered/Resolved]
  - Fatigue [Recovered/Resolved]

NARRATIVE: CASE EVENT DATE: 20130111
